FAERS Safety Report 17026831 (Version 1)
Quarter: 2019Q4

REPORT INFORMATION
  Report Type: Spontaneous
  Country: US (occurrence: US)
  Receive Date: 20191011
  Receipt Date: 20191011
  Transmission Date: 20200122
  Serious: No
  Sender: FDA-Public Use
  Company Number: None

PATIENT
  Age: 39 Year
  Sex: Female

DRUGS (1)
  1. TASIGNA [Suspect]
     Active Substance: NILOTINIB
     Route: 048
     Dates: start: 201910

REACTIONS (8)
  - Asthenia [None]
  - Headache [None]
  - Tremor [None]
  - Insomnia [None]
  - Nausea [None]
  - Abdominal pain upper [None]
  - Cough [None]
  - Muscle spasms [None]

NARRATIVE: CASE EVENT DATE: 20191011
